FAERS Safety Report 4633565-5 (Version None)
Quarter: 2005Q2

REPORT INFORMATION
  Report Type: 
  Country: None (occurrence: None)
  Receive Date: 20050411
  Receipt Date: 20050411
  Transmission Date: 20051028
  Serious: Yes (Hospitalization)
  Sender: FDA-Public Use
  Company Number: None

PATIENT
  Age: 69 Year
  Sex: Male
  Weight: 81 kg

DRUGS (12)
  1. WARFARIN   5MG   DUPONT [Suspect]
     Indication: CORONARY ARTERY DISEASE
     Dosage: 7.5MG/5MG  MWF/ROW  ORAL
     Route: 048
     Dates: start: 20031009, end: 20050408
  2. WARFARIN   5MG   DUPONT [Suspect]
     Indication: MITRAL VALVE REPLACEMENT
     Dosage: 7.5MG/5MG  MWF/ROW  ORAL
     Route: 048
     Dates: start: 20031009, end: 20050408
  3. NITROGLYCERIN [Concomitant]
  4. METOPROLOL SA [Concomitant]
  5. POTASSIUM CHLORIDE [Concomitant]
  6. METFORMIN [Concomitant]
  7. LEVOTHYROXINE SODIUM [Concomitant]
  8. GLIPIZIDE [Concomitant]
  9. FUROSEMIDE [Concomitant]
  10. DIGOXIN [Concomitant]
  11. CLOPIDOGREL [Concomitant]
  12. CAPTOPRIL [Concomitant]

REACTIONS (2)
  - ASTHENIA [None]
  - FACIAL PALSY [None]
